FAERS Safety Report 11627500 (Version 2)
Quarter: 2022Q2

REPORT INFORMATION
  Report Type: Report from Study
  Country: US (occurrence: None)
  Receive Date: 20151013
  Receipt Date: 20220512
  Transmission Date: 20220720
  Serious: Yes (Death, Life-Threatening)
  Sender: FDA-Public Use
  Company Number: US-ROCHE-782291

PATIENT
  Age: 76 Year
  Sex: Female
  Weight: 102 kg

DRUGS (12)
  1. BEVACIZUMAB [Suspect]
     Active Substance: BEVACIZUMAB
     Indication: Fallopian tube cancer
     Dosage: OVER 30-90 MIN ON DAY 1. CYCLE: 21 DAYS?ON 14/MAR/2011, LAST DOSE OF ADMINISTRATION PRIOR TO SAE
     Route: 042
     Dates: start: 20110114
  2. BEVACIZUMAB [Suspect]
     Active Substance: BEVACIZUMAB
     Indication: Malignant peritoneal neoplasm
  3. BEVACIZUMAB [Suspect]
     Active Substance: BEVACIZUMAB
     Indication: Ovarian cancer recurrent
  4. CARBOPLATIN [Suspect]
     Active Substance: CARBOPLATIN
     Indication: Fallopian tube cancer
     Dosage: 5 AUC OVER 30 MIN ON DAY 1. CYCLE: 21 DAYS.?ON 01/JUL/2011, LAST DOSE OF PRIOR TO SAE
     Route: 042
     Dates: start: 20110114, end: 20220114
  5. CARBOPLATIN [Suspect]
     Active Substance: CARBOPLATIN
     Indication: Malignant peritoneal neoplasm
  6. CARBOPLATIN [Suspect]
     Active Substance: CARBOPLATIN
     Indication: Ovarian cancer recurrent
  7. PACLITAXEL [Suspect]
     Active Substance: PACLITAXEL
     Indication: Fallopian tube cancer
     Dosage: OVER 3 HRS ON DAY 1. CYCLE: 21 DAYS.?ON 01/JUL/2011 LAST DOSE OF PRIOR TO SAE
     Route: 042
     Dates: start: 20110114, end: 20110114
  8. PACLITAXEL [Suspect]
     Active Substance: PACLITAXEL
     Indication: Malignant peritoneal neoplasm
  9. PACLITAXEL [Suspect]
     Active Substance: PACLITAXEL
     Indication: Ovarian cancer recurrent
  10. DOCETAXEL [Suspect]
     Active Substance: DOCETAXEL
     Indication: Fallopian tube cancer
     Dosage: OVER 1 HOUR ON DAY 1
     Route: 042
     Dates: start: 20110114, end: 20110114
  11. DOCETAXEL [Suspect]
     Active Substance: DOCETAXEL
     Indication: Ovarian cancer recurrent
  12. DOCETAXEL [Suspect]
     Active Substance: DOCETAXEL
     Indication: Malignant peritoneal neoplasm

REACTIONS (2)
  - Second primary malignancy [Fatal]
  - Neutrophil count decreased [Recovered/Resolved]

NARRATIVE: CASE EVENT DATE: 20110128
